FAERS Safety Report 15471241 (Version 2)
Quarter: 2018Q4

REPORT INFORMATION
  Report Type: Spontaneous
  Country: US (occurrence: US)
  Receive Date: 20181006
  Receipt Date: 20181120
  Transmission Date: 20190205
  Serious: No
  Sender: FDA-Public Use
  Company Number: PHHY2018US119172

PATIENT
  Sex: Female

DRUGS (1)
  1. GENTEAL MILD [Suspect]
     Active Substance: HYPROMELLOSE 2910 (4000 MPA.S)
     Indication: PRODUCT USED FOR UNKNOWN INDICATION
     Route: 047

REACTIONS (3)
  - Product design issue [Unknown]
  - Eye pruritus [Unknown]
  - Ocular hyperaemia [Unknown]
